FAERS Safety Report 13704320 (Version 4)
Quarter: 2018Q3

REPORT INFORMATION
  Report Type: Spontaneous
  Country: FR (occurrence: FR)
  Receive Date: 20170630
  Receipt Date: 20180712
  Transmission Date: 20181010
  Serious: Yes (Disabling)
  Sender: FDA-Public Use
  Company Number: FR-ROCHE-1956431

PATIENT
  Sex: Male
  Weight: 90 kg

DRUGS (20)
  1. PAROXETINE. [Suspect]
     Active Substance: PAROXETINE
     Indication: PRODUCT USED FOR UNKNOWN INDICATION
     Route: 065
     Dates: start: 20110201
  2. RIVOTRIL [Suspect]
     Active Substance: CLONAZEPAM
     Indication: PAIN
     Route: 048
     Dates: start: 20110219
  3. MIOREL (FRANCE) [Concomitant]
     Active Substance: METHOCARBAMOL
     Route: 065
     Dates: start: 20101210
  4. DOMPERIDONE [Concomitant]
     Active Substance: DOMPERIDONE
     Route: 065
     Dates: start: 20110303
  5. ULTRA LEVURE [Concomitant]
     Active Substance: SACCHAROMYCES CEREVISIAE
     Route: 065
     Dates: start: 20110531
  6. DOMPERIDONE [Concomitant]
     Active Substance: DOMPERIDONE
     Route: 065
     Dates: start: 20110531
  7. SPIFEN [Concomitant]
     Active Substance: IBUPROFEN
     Route: 065
     Dates: start: 20110531
  8. TETRAZEPAM [Concomitant]
     Active Substance: TETRAZEPAM
     Route: 065
     Dates: start: 20110705
  9. TEMERIT [Concomitant]
     Active Substance: NEBIVOLOL
     Route: 065
     Dates: start: 20110718
  10. DIANTALVIC [Suspect]
     Active Substance: ACETAMINOPHEN\PROPOXYPHENE
     Indication: PRODUCT USED FOR UNKNOWN INDICATION
     Route: 065
     Dates: start: 20100606
  11. PANTOPRAZOLE [Concomitant]
     Active Substance: PANTOPRAZOLE
     Route: 065
     Dates: start: 20110303
  12. DOLIPRANE [Concomitant]
     Active Substance: ACETAMINOPHEN
     Route: 065
     Dates: start: 20101213
  13. MIOREL (FRANCE) [Concomitant]
     Active Substance: METHOCARBAMOL
     Route: 065
     Dates: start: 20101213
  14. DERINOX (FRANCE) [Concomitant]
     Route: 065
     Dates: start: 20110531
  15. NUREFLEX [Concomitant]
     Active Substance: IBUPROFEN
     Route: 065
     Dates: start: 20101213
  16. RIVOTRIL [Suspect]
     Active Substance: CLONAZEPAM
     Route: 048
     Dates: start: 20110718
  17. TETRAZEPAM [Suspect]
     Active Substance: TETRAZEPAM
     Indication: PRODUCT USED FOR UNKNOWN INDICATION
     Route: 065
     Dates: start: 20110705
  18. TANGANIL [Concomitant]
     Active Substance: ACETYLLEUCINE
     Route: 065
     Dates: start: 20110303
  19. SPIFEN [Concomitant]
     Active Substance: IBUPROFEN
     Route: 065
     Dates: start: 20110705
  20. TRIMEBUTINE [Concomitant]
     Active Substance: TRIMEBUTINE
     Route: 065
     Dates: start: 20110531

REACTIONS (26)
  - Anxiety [Recovered/Resolved]
  - Product use in unapproved indication [Unknown]
  - Irritability [Unknown]
  - Dyspnoea exertional [Unknown]
  - Pain in extremity [Unknown]
  - Supraventricular extrasystoles [Not Recovered/Not Resolved]
  - Agoraphobia [Recovered/Resolved]
  - Neurosis [Not Recovered/Not Resolved]
  - Photophobia [Recovered/Resolved]
  - Insomnia [Unknown]
  - Tinnitus [Recovered/Resolved]
  - Panic attack [Recovered/Resolved]
  - Off label use [Unknown]
  - Presyncope [Unknown]
  - Hallucination, visual [Unknown]
  - Hallucination, auditory [Recovered/Resolved]
  - Hypomania [Unknown]
  - Memory impairment [Recovered/Resolved]
  - Erectile dysfunction [Not Recovered/Not Resolved]
  - Disturbance in attention [Unknown]
  - Affect lability [Unknown]
  - Vertigo [Unknown]
  - Palpitations [Unknown]
  - Accommodation disorder [Recovered/Resolved]
  - Tachycardia [Unknown]
  - Asthenia [Unknown]
